FAERS Safety Report 8811964 (Version 1)
Quarter: 2012Q4

REPORT INFORMATION
  Report Type: 
  Country: US (occurrence: US)
  Receive Date: 20120927
  Receipt Date: 20120927
  Transmission Date: 20130627
  Serious: Yes (Other)
  Sender: FDA-Public Use
  Company Number: US-PFIZER INC-2012236762

PATIENT
  Age: 72 Year
  Sex: Male

DRUGS (1)
  1. SUTENT [Suspect]

REACTIONS (4)
  - Second primary malignancy [Unknown]
  - Pulmonary mass [Unknown]
  - Headache [Unknown]
  - Bedridden [Unknown]
